FAERS Safety Report 8154795-4 (Version None)
Quarter: 2012Q1

REPORT INFORMATION
  Report Type: 
  Country: None (occurrence: None)
  Receive Date: 20120221
  Receipt Date: 20120209
  Transmission Date: 20120608
  Serious: Yes (Hospitalization)
  Sender: FDA-Public Use
  Company Number: PHHY2012ES012106

PATIENT
  Age: 81 Year
  Sex: Male

DRUGS (7)
  1. RASILEZ [Suspect]
     Indication: HYPERTENSION
     Dosage: 150 MG, QD
     Route: 048
     Dates: start: 20110714, end: 20110927
  2. ACOXXEL [Concomitant]
  3. NOVOMIX [Concomitant]
     Dates: start: 20051116
  4. ASPIRIN [Concomitant]
     Indication: PROPHYLAXIS
     Dosage: 100 MG, QD
     Route: 048
     Dates: start: 20010101, end: 20110927
  5. CO-VALS [Suspect]
     Indication: HYPERTENSION
     Dosage: 160/25 MG
     Route: 048
     Dates: start: 20070927, end: 20110927
  6. TRAMADOL HCL [Concomitant]
     Dates: start: 20110601, end: 20110927
  7. METFORMIN HCL [Concomitant]
     Dates: start: 20110101, end: 20110927

REACTIONS (2)
  - RENAL FAILURE ACUTE [None]
  - BLOOD CREATININE INCREASED [None]
